FAERS Safety Report 8413929-4 (Version None)
Quarter: 2012Q2

REPORT INFORMATION
  Report Type: 
  Country: None (occurrence: None)
  Receive Date: 20120605
  Receipt Date: 20120601
  Transmission Date: 20120825
  Serious: Yes (Death)
  Sender: FDA-Public Use
  Company Number: US-TEVA-338234USA

PATIENT
  Age: 32 Year
  Sex: Female

DRUGS (2)
  1. OXYCODONE HYDROCHLORIDE [Suspect]
  2. FLUOXETINE [Suspect]

REACTIONS (1)
  - TOXICITY TO VARIOUS AGENTS [None]
